FAERS Safety Report 10548130 (Version 1)
Quarter: 2014Q4

REPORT INFORMATION
  Report Type: Spontaneous
  Country: US (occurrence: None)
  Receive Date: 20141027
  Receipt Date: 20141027
  Transmission Date: 20150529
  Serious: Yes (Other)
  Sender: FDA-Public Use
  Company Number: None

PATIENT
  Sex: Female
  Weight: 61 kg

DRUGS (1)
  1. REMBRANDT 2 HOUR WHITENING KIT [Suspect]
     Active Substance: GLYCERIN\HYDROGEN PEROXIDE
     Indication: DENTAL CLEANING
     Dosage: AS DIRECTED, 1X, ORAL
     Route: 048
     Dates: start: 20140912

REACTIONS (9)
  - Lip swelling [None]
  - Gingival erythema [None]
  - Burns third degree [None]
  - Gingival blister [None]
  - Cheilitis [None]
  - Feeding disorder [None]
  - Burning sensation [None]
  - Oral pain [None]
  - Stomatitis [None]

NARRATIVE: CASE EVENT DATE: 20140912
